FAERS Safety Report 5835151-8 (Version None)
Quarter: 2008Q3

REPORT INFORMATION
  Report Type: 
  Country: None (occurrence: None)
  Receive Date: 20080801
  Receipt Date: 20080716
  Transmission Date: 20090109
  Serious: Yes (Death)
  Sender: FDA-Public Use
  Company Number: B0530551A

PATIENT
  Sex: 0

DRUGS (3)
  1. ABACAVIR SULFATE [Suspect]
     Indication: HIV INFECTION
  2. TENOFOVIR DISOPROXIL FUMARATE [Suspect]
     Indication: HIV INFECTION
  3. STAVUDINE [Concomitant]

REACTIONS (3)
  - ANAEMIA [None]
  - GLOMERULAR FILTRATION RATE DECREASED [None]
  - RENAL FAILURE CHRONIC [None]
